FAERS Safety Report 7287811-2 (Version None)
Quarter: 2011Q1

REPORT INFORMATION
  Report Type: 
  Country: None (occurrence: None)
  Receive Date: 20110211
  Receipt Date: 20110210
  Transmission Date: 20110831
  Serious: No
  Sender: FDA-Public Use
  Company Number: US-PFIZER INC-2011030307

PATIENT
  Sex: Female
  Weight: 49.9 kg

DRUGS (2)
  1. LOESTRIN 24 FE [Concomitant]
     Indication: ORAL CONTRACEPTION
     Dosage: 1 MG, ON AND OFF
     Route: 048
  2. CHANTIX [Suspect]
     Indication: SMOKING CESSATION THERAPY
     Dosage: 0.5 MG, UNK
     Route: 048
     Dates: start: 20110131

REACTIONS (2)
  - VOMITING [None]
  - ASTHENIA [None]
